FAERS Safety Report 7632781-8 (Version None)
Quarter: 2011Q3

REPORT INFORMATION
  Report Type: 
  Country: None (occurrence: None)
  Receive Date: 20110725
  Receipt Date: 20110110
  Transmission Date: 20111222
  Serious: No
  Sender: FDA-Public Use
  Company Number: US-BRISTOL-MYERS SQUIBB COMPANY-15479090

PATIENT
  Sex: Male

DRUGS (2)
  1. PLAVIX [Suspect]
  2. COUMADIN [Suspect]

REACTIONS (2)
  - ANASTOMOTIC ULCER [None]
  - HAEMORRHAGE [None]
